FAERS Safety Report 5251106-9 (Version None)
Quarter: 2007Q1

REPORT INFORMATION
  Report Type: 
  Country: None (occurrence: None)
  Receive Date: 20070228
  Receipt Date: 20060825
  Transmission Date: 20070707
  Serious: No
  Sender: FDA-Public Use
  Company Number: US-GLAXOSMITHKLINE-A0618088A

PATIENT
  Age: 51 Year
  Sex: Female

DRUGS (5)
  1. LAMICTAL [Suspect]
     Dosage: 100MG TWICE PER DAY
     Route: 048
  2. SINGULAIR [Concomitant]
  3. LOPID [Concomitant]
  4. PRAVACHOL [Concomitant]
  5. FOLIC ACID [Concomitant]

REACTIONS (1)
  - BLOOD BLISTER [None]
